FAERS Safety Report 6913864-4 (Version None)
Quarter: 2010Q3

REPORT INFORMATION
  Report Type: 
  Country: None (occurrence: None)
  Receive Date: 20100809
  Receipt Date: 20100802
  Transmission Date: 20110219
  Serious: Yes (Life-Threatening, Hospitalization, Other)
  Sender: FDA-Public Use
  Company Number: BR-ROCHE-719282

PATIENT
  Sex: Male

DRUGS (5)
  1. PEGINTERFERON ALFA-2A [Suspect]
     Indication: HEPATITIS C
     Route: 065
     Dates: start: 20081031, end: 20090820
  2. RIBAVIRIN [Concomitant]
     Indication: HEPATITIS C
     Dates: start: 20081031
  3. RIBAVIRIN [Concomitant]
     Dosage: DOSE DECREASED
     Dates: end: 20090820
  4. OMEPRAZOLE [Concomitant]
     Indication: GASTRITIS
  5. PROPRANOLOL [Concomitant]
     Indication: HYPERTENSION
     Dosage: DRUG: PROPANOLOL

REACTIONS (8)
  - ABDOMINAL PAIN [None]
  - COLITIS [None]
  - GASTROENTERITIS [None]
  - HYPOTHYROIDISM [None]
  - PANCYTOPENIA [None]
  - PORTAL HYPERTENSION [None]
  - PYREXIA [None]
  - THROMBOCYTOPENIA [None]
